FAERS Safety Report 8978272 (Version 1)
Quarter: 2012Q4

REPORT INFORMATION
  Report Type: Spontaneous
  Country: MY (occurrence: None)
  Receive Date: 20120914
  Receipt Date: 20120914
  Transmission Date: 20130627
  Serious: Yes (Life-Threatening, Hospitalization, Other)
  Sender: FDA-Public Use
  Company Number: 218003

PATIENT
  Age: 19 Year
  Sex: Female

DRUGS (1)
  1. INNOHEP (TINZAPARIN SODIUM) [Suspect]
     Indication: DEEP VEIN THROMBOSIS

REACTIONS (7)
  - Pulmonary embolism [None]
  - Maternal exposure during pregnancy [None]
  - Sepsis [None]
  - Platelet count decreased [None]
  - Foetal death [None]
  - Eclampsia [None]
  - Posterior reversible encephalopathy syndrome [None]
